FAERS Safety Report 8832016 (Version 2)
Quarter: 2013Q1

REPORT INFORMATION
  Report Type: Report from Study
  Country: CA (occurrence: CA)
  Receive Date: 20121009
  Receipt Date: 20130322
  Transmission Date: 20140127
  Serious: Yes (Other)
  Sender: FDA-Public Use
  Company Number: CA-JNJFOC-20121000535

PATIENT
  Age: 26 Year
  Sex: Female
  Weight: 74.3 kg

DRUGS (10)
  1. REMICADE [Suspect]
     Indication: CROHN^S DISEASE
     Route: 042
     Dates: start: 20120928
  2. REMICADE [Suspect]
     Indication: CROHN^S DISEASE
     Route: 042
     Dates: start: 20101215
  3. REMICADE [Suspect]
     Indication: CROHN^S DISEASE
     Route: 042
     Dates: start: 201012
  4. DEMULEN UNSPECIFIED [Concomitant]
     Route: 065
  5. ADVAIR [Concomitant]
     Route: 065
  6. OMEPRAZOLE [Concomitant]
     Route: 065
  7. VENTOLIN [Concomitant]
     Route: 065
  8. SINGULAIR [Concomitant]
     Route: 065
  9. LOSEC [Concomitant]
     Route: 065
  10. UNKNOWN MEDICATION [Concomitant]
     Indication: ECZEMA
     Route: 065

REACTIONS (2)
  - Asthma [Recovered/Resolved]
  - Lower respiratory tract infection [Recovered/Resolved]
